FAERS Safety Report 6520324-1 (Version None)
Quarter: 2009Q4

REPORT INFORMATION
  Report Type: 
  Country: None (occurrence: None)
  Receive Date: 20091229
  Receipt Date: 20091214
  Transmission Date: 20100525
  Serious: Yes (Hospitalization)
  Sender: FDA-Public Use
  Company Number: ES-PFIZER INC-2009309450

PATIENT
  Age: 84 Year
  Sex: Male

DRUGS (4)
  1. ALDACTONE [Suspect]
     Indication: CARDIAC FAILURE CHRONIC
     Dosage: 100 MG, 1X/DAY
     Route: 048
     Dates: start: 20050101, end: 20050726
  2. BOI-K ASPARTICO [Interacting]
     Indication: CARDIAC FAILURE CHRONIC
     Dosage: UNK
     Dates: start: 20050101, end: 20050726
  3. FURSEMIDA [Interacting]
     Indication: CARDIAC FAILURE CHRONIC
     Dosage: 40 MG, 1X/DAY
     Route: 048
     Dates: start: 20050101, end: 20050726
  4. NIFEDIPINE [Interacting]
     Indication: CARDIAC FAILURE CHRONIC
     Dosage: 10 MG, 1X/DAY
     Route: 048
     Dates: start: 20050101, end: 20050726

REACTIONS (3)
  - BRADYARRHYTHMIA [None]
  - DRUG INTERACTION [None]
  - HYPERKALAEMIA [None]
